FAERS Safety Report 19684861 (Version 1)
Quarter: 2021Q3

REPORT INFORMATION
  Report Type: Spontaneous
  Country: US (occurrence: US)
  Receive Date: 20210810
  Receipt Date: 20210810
  Transmission Date: 20211014
  Serious: Yes (Hospitalization)
  Sender: FDA-Public Use
  Company Number: None

PATIENT
  Sex: Male

DRUGS (3)
  1. TACROLIMUS (ACCORD)  0.5MG ACCORD HEALTHCARE [Suspect]
     Active Substance: TACROLIMUS
     Indication: ORGAN TRANSPLANT
     Route: 048
     Dates: start: 202108
  2. TACROLIMUS (ACCORD)  0.5MG ACCORD HEALTHCARE [Suspect]
     Active Substance: TACROLIMUS
     Indication: HYPOKALAEMIA
     Route: 048
     Dates: start: 202108
  3. TACROLIMUS (ACCORD)  0.5MG ACCORD HEALTHCARE [Suspect]
     Active Substance: TACROLIMUS
     Indication: HYPOMAGNESAEMIA
     Route: 048
     Dates: start: 202108

REACTIONS (1)
  - Hospitalisation [None]
